FAERS Safety Report 22606655 (Version 3)
Quarter: 2023Q4

REPORT INFORMATION
  Report Type: Report from Study
  Country: US (occurrence: US)
  Receive Date: 20230615
  Receipt Date: 20231009
  Transmission Date: 20240110
  Serious: Yes (Hospitalization)
  Sender: FDA-Public Use
  Company Number: US-ARGENX-2023-ARGX-US001868

PATIENT

DRUGS (1)
  1. VYVGART [Suspect]
     Active Substance: EFGARTIGIMOD ALFA-FCAB
     Indication: Myasthenia gravis
     Dosage: 10 MG/KG
     Route: 042

REACTIONS (6)
  - Myasthenia gravis crisis [Recovering/Resolving]
  - Tooth extraction [Unknown]
  - Thymoma [Not Recovered/Not Resolved]
  - Chemotherapy [Unknown]
  - Dyspnoea exertional [Unknown]
  - Anaemia [Unknown]

NARRATIVE: CASE EVENT DATE: 20230701
